FAERS Safety Report 5321991-0 (Version None)
Quarter: 2007Q2

REPORT INFORMATION
  Report Type: 
  Country: None (occurrence: None)
  Receive Date: 20070508
  Receipt Date: 20070508
  Transmission Date: 20071010
  Serious: Yes (Hospitalization, Other)
  Sender: FDA-Public Use
  Company Number: None

PATIENT
  Age: 37 Year
  Sex: Female
  Weight: 59.8748 kg

DRUGS (4)
  1. ABILIFY [Suspect]
     Indication: SCHIZOPHRENIA
     Dosage: 45 MG ONCE DAILY ORALLY
     Route: 048
     Dates: start: 20070412, end: 20070423
  2. ARTANE [Concomitant]
  3. LICO3 [Concomitant]
  4. AMBIEN [Concomitant]

REACTIONS (4)
  - ABNORMAL BEHAVIOUR [None]
  - FOOD CRAVING [None]
  - HALLUCINATION [None]
  - SKIN DISCOLOURATION [None]
